FAERS Safety Report 7552650-1 (Version None)
Quarter: 2011Q2

REPORT INFORMATION
  Report Type: 
  Country: None (occurrence: None)
  Receive Date: 20110616
  Receipt Date: 20110318
  Transmission Date: 20111010
  Serious: Yes (Death, Hospitalization, Other)
  Sender: FDA-Public Use
  Company Number: US-BAYER-2011-025047

PATIENT
  Age: 51 Year
  Sex: Male

DRUGS (5)
  1. ANTIEMETICS AND ANTINAUSEANTS [Concomitant]
  2. ANTIBIOTICS FOR TOPICAL USE [Concomitant]
  3. POTASSIUM [Concomitant]
  4. SORAFENIB (RAF KINASE INHIBITOR) [Suspect]
     Indication: HEPATIC NEOPLASM MALIGNANT
     Dosage: 2 PILLS TWICE A DAY
     Dates: start: 20110317, end: 20110512
  5. ANALGESICS [Concomitant]

REACTIONS (12)
  - SKIN LESION [None]
  - VOMITING [None]
  - DIZZINESS [None]
  - SKIN EXFOLIATION [None]
  - ABASIA [None]
  - ABDOMINAL DISCOMFORT [None]
  - MUSCLE SPASMS [None]
  - NAUSEA [None]
  - ASTHENIA [None]
  - DEATH [None]
  - HYPOPHAGIA [None]
  - SKIN FISSURES [None]
